FAERS Safety Report 5217831-0 (Version None)
Quarter: 2007Q1

REPORT INFORMATION
  Report Type: 
  Country: None (occurrence: None)
  Receive Date: 20061130
  Receipt Date: 20060720
  Transmission Date: 20070707
  Serious: Yes (Other)
  Sender: FDA-Public Use
  Company Number: US200607003722

PATIENT

DRUGS (1)
  1. ZYPREXA [Suspect]
     Dates: start: 20000601

REACTIONS (2)
  - CEREBROVASCULAR ACCIDENT [None]
  - HYPERGLYCAEMIA [None]
